FAERS Safety Report 6079459-2 (Version None)
Quarter: 2009Q1

REPORT INFORMATION
  Report Type: 
  Country: None (occurrence: None)
  Receive Date: 20090216
  Receipt Date: 20090204
  Transmission Date: 20090719
  Serious: Yes (Hospitalization, Other)
  Sender: FDA-Public Use
  Company Number: ES-ELI_LILLY_AND_COMPANY-ES200902001259

PATIENT
  Age: 77 Year
  Sex: Female

DRUGS (2)
  1. FORTEO [Suspect]
     Indication: OSTEOPOROSIS
     Dosage: 20 UG, UNK
     Route: 058
     Dates: start: 20081101, end: 20090101
  2. SINTROM [Concomitant]

REACTIONS (9)
  - ABASIA [None]
  - APHASIA [None]
  - BONE PAIN [None]
  - CARDIAC INFECTION [None]
  - MALAISE [None]
  - PNEUMONIA [None]
  - SEPSIS [None]
  - TACHYCARDIA [None]
  - THROMBOSIS [None]
